FAERS Safety Report 16255819 (Version 1)
Quarter: 2019Q2

REPORT INFORMATION
  Report Type: Spontaneous
  Country: US (occurrence: US)
  Receive Date: 20190429
  Receipt Date: 20190429
  Transmission Date: 20190711
  Serious: Yes (Hospitalization)
  Sender: FDA-Public Use
  Company Number: None

PATIENT
  Sex: Male

DRUGS (5)
  1. CLARITIN, FLONASE [Concomitant]
  2. TOBRAMYCIN. [Suspect]
     Active Substance: TOBRAMYCIN
     Indication: CYSTIC FIBROSIS
     Dosage: ?          OTHER FREQUENCY:Q 12 HOURS;OTHER ROUTE:VIA NEBULIZER?
     Dates: start: 20160105
  3. TOBI [Concomitant]
     Active Substance: TOBRAMYCIN
  4. ALBUTEROL, BACTRIM [Concomitant]
  5. FLOVENT, SINGULAIR [Concomitant]

REACTIONS (1)
  - Unevaluable event [None]
